FAERS Safety Report 5339993-7 (Version None)
Quarter: 2007Q2

REPORT INFORMATION
  Report Type: 
  Country: None (occurrence: None)
  Receive Date: 20070405
  Receipt Date: 20061103
  Transmission Date: 20071010
  Serious: No
  Sender: FDA-Public Use
  Company Number: US200611000801

PATIENT
  Age: 64 Year
  Sex: Male

DRUGS (2)
  1. CYMBALTA [Suspect]
     Indication: DEPRESSION
     Dosage: 25 MG, DAILY (1/D), ORAL
     Route: 048
     Dates: start: 20060801
  2. TOPROL-XL [Concomitant]

REACTIONS (1)
  - BLOOD GLUCOSE DECREASED [None]
